FAERS Safety Report 9802118 (Version 1)
Quarter: 2014Q1

REPORT INFORMATION
  Report Type: Spontaneous
  Country: GB (occurrence: GB)
  Receive Date: 20140107
  Receipt Date: 20140107
  Transmission Date: 20141002
  Serious: Yes (Hospitalization)
  Sender: FDA-Public Use
  Company Number: GB-WATSON-2013-23954

PATIENT
  Age: 7 Year
  Sex: Male

DRUGS (2)
  1. OXYBUTYNIN [Suspect]
     Indication: HYPERTONIC BLADDER
     Dosage: 10 MG, DAILY; SLOW RELEASE
     Route: 048
     Dates: start: 20130808, end: 20130819
  2. OXYBUTYNIN [Suspect]
     Dosage: 5 MG, DAILY; SLOW RELEASE
     Route: 048
     Dates: end: 20130808

REACTIONS (6)
  - Angioedema [Recovered/Resolved with Sequelae]
  - Swelling face [Recovered/Resolved with Sequelae]
  - Swollen tongue [Recovered/Resolved with Sequelae]
  - Oedema mouth [Recovered/Resolved with Sequelae]
  - Headache [Unknown]
  - Hyperaesthesia [Unknown]
